FAERS Safety Report 5369890-2 (Version None)
Quarter: 2007Q2

REPORT INFORMATION
  Report Type: 
  Country: None (occurrence: None)
  Receive Date: 20070621
  Receipt Date: 20070611
  Transmission Date: 20071010
  Serious: Yes (Death, Life-Threatening, Hospitalization, Other)
  Sender: FDA-Public Use
  Company Number: 430005L07ISR

PATIENT
  Age: 16 Year

DRUGS (3)
  1. MITOXANTRONE HYDROCHLORIDE (MITOXANTRONE HYDROCHLORIDE) [Suspect]
     Indication: ACUTE LYMPHOCYTIC LEUKAEMIA
  2. ACLARUBICIN [Suspect]
     Indication: ACUTE LYMPHOCYTIC LEUKAEMIA
  3. DOXORUBICIN /00330901/ [Suspect]
     Indication: ACUTE LYMPHOCYTIC LEUKAEMIA

REACTIONS (7)
  - ARRHYTHMIA [None]
  - CARDIOMYOPATHY [None]
  - DISEASE RECURRENCE [None]
  - HYPOKALAEMIA [None]
  - LEFT VENTRICULAR DYSFUNCTION [None]
  - PULMONARY HAEMORRHAGE [None]
  - TORSADE DE POINTES [None]
